FAERS Safety Report 4690536-0 (Version None)
Quarter: 2005Q2

REPORT INFORMATION
  Report Type: 
  Country: None (occurrence: None)
  Receive Date: 20050615
  Receipt Date: 20030826
  Transmission Date: 20051028
  Serious: Yes (Hospitalization, Disabling, Other)
  Sender: FDA-Public Use
  Company Number: US-MERCK-0308USA02595

PATIENT
  Age: 56 Year
  Sex: Male
  Weight: 101 kg

DRUGS (8)
  1. VIOXX [Suspect]
     Indication: ARTHRALGIA
     Route: 048
     Dates: start: 20010501, end: 20010722
  2. VIOXX [Suspect]
     Route: 048
     Dates: start: 20010723
  3. ADVIL [Concomitant]
     Indication: OSTEOARTHRITIS
     Route: 065
  4. ADVIL [Concomitant]
     Indication: HERPES ZOSTER
     Route: 065
  5. VICODIN [Concomitant]
     Indication: OSTEOARTHRITIS
     Route: 065
  6. ASPIRIN [Concomitant]
     Indication: OSTEOARTHRITIS
     Route: 065
  7. ULTRAM [Concomitant]
     Indication: OSTEOARTHRITIS
     Route: 065
     Dates: start: 20010501
  8. ULTRAM [Concomitant]
     Indication: PAIN
     Route: 065
     Dates: start: 20010501

REACTIONS (17)
  - ACUTE MYOCARDIAL INFARCTION [None]
  - CALCULUS URETERIC [None]
  - CALCULUS URINARY [None]
  - CHEST DISCOMFORT [None]
  - CORONARY ARTERY OCCLUSION [None]
  - COUGH [None]
  - DIVERTICULITIS [None]
  - EMOTIONAL DISTRESS [None]
  - FATIGUE [None]
  - INJURY [None]
  - MITRAL VALVE INCOMPETENCE [None]
  - MORBID THOUGHTS [None]
  - OSTEOARTHRITIS [None]
  - PALPITATIONS [None]
  - PNEUMONIA INFLUENZAL [None]
  - TRICUSPID VALVE INCOMPETENCE [None]
  - WEIGHT FLUCTUATION [None]
